FAERS Safety Report 4529613-3 (Version None)
Quarter: 2004Q4

REPORT INFORMATION
  Report Type: 
  Country: None (occurrence: None)
  Receive Date: 20041216
  Receipt Date: 20041014
  Transmission Date: 20050328
  Serious: Yes (Life-Threatening, Hospitalization, Disabling, Other)
  Sender: FDA-Public Use
  Company Number: GB-MERCK-0410GBR00173

PATIENT
  Age: 44 Year
  Sex: Male
  Weight: 92 kg

DRUGS (1)
  1. VIOXX [Suspect]
     Indication: INFLAMMATION
     Route: 048
     Dates: start: 20030101, end: 20041101

REACTIONS (1)
  - DEEP VEIN THROMBOSIS [None]
